FAERS Safety Report 8492844-4 (Version None)
Quarter: 2012Q3

REPORT INFORMATION
  Report Type: 
  Country: None (occurrence: None)
  Receive Date: 20120706
  Receipt Date: 20120625
  Transmission Date: 20120928
  Serious: Yes (Hospitalization, Other)
  Sender: FDA-Public Use
  Company Number: FR-BRISTOL-MYERS SQUIBB COMPANY-16716532

PATIENT
  Age: 54 Year
  Sex: Male

DRUGS (9)
  1. CRESTOR [Concomitant]
  2. CLOMIPRAMINE HCL [Concomitant]
  3. OMEPRAZOLE [Concomitant]
  4. PREZISTA [Concomitant]
  5. ASPIRIN [Concomitant]
  6. VIDEX [Suspect]
     Indication: HIV INFECTION
     Route: 048
     Dates: end: 20110527
  7. NORVIR [Concomitant]
  8. SERTRALINE HYDROCHLORIDE [Concomitant]
  9. VIREAD [Interacting]
     Indication: HIV INFECTION
     Route: 048
     Dates: end: 20110527

REACTIONS (2)
  - MITOCHONDRIAL CYTOPATHY [None]
  - DRUG INTERACTION [None]
